FAERS Safety Report 9788296 (Version 2)
Quarter: 2014Q1

REPORT INFORMATION
  Report Type: Spontaneous
  Country: US (occurrence: US)
  Receive Date: 20131230
  Receipt Date: 20140116
  Transmission Date: 20141002
  Serious: Yes (Other)
  Sender: FDA-Public Use
  Company Number: US-UCBSA-106675

PATIENT
  Age: 30 Year
  Sex: Female

DRUGS (2)
  1. CIMZIA [Suspect]
     Indication: CROHN^S DISEASE
     Dates: end: 20131211
  2. CIMZIA [Suspect]
     Indication: CROHN^S DISEASE
     Dosage: UNKNOWN DOSE
     Dates: start: 20090508

REACTIONS (2)
  - Erythema [Recovered/Resolved]
  - Drug ineffective [Recovered/Resolved]
